FAERS Safety Report 8556320-2 (Version None)
Quarter: 2012Q3

REPORT INFORMATION
  Report Type: 
  Country: None (occurrence: None)
  Receive Date: 20120801
  Receipt Date: 20120725
  Transmission Date: 20120928
  Serious: Yes (Death)
  Sender: FDA-Public Use
  Company Number: US-JNJFOC-20120714157

PATIENT
  Age: 57 Year
  Sex: Male

DRUGS (5)
  1. PREDNISONE [Concomitant]
     Indication: IMMUNOSUPPRESSION
     Route: 065
  2. TACROLIMUS [Concomitant]
     Indication: IMMUNOSUPPRESSION
     Route: 065
  3. MYCOPHENOLATE MOFETIL [Concomitant]
     Indication: IMMUNOSUPPRESSION
     Route: 065
  4. ITRACONAZOLE [Suspect]
     Indication: FUNGAL INFECTION
     Route: 065
  5. AMPHOTERICIN B [Suspect]
     Indication: FUNGAL INFECTION
     Route: 065

REACTIONS (1)
  - DEATH [None]
